FAERS Safety Report 15709540 (Version 1)
Quarter: 2018Q4

REPORT INFORMATION
  Report Type: Spontaneous
  Country: CA (occurrence: CA)
  Receive Date: 20181211
  Receipt Date: 20181211
  Transmission Date: 20190205
  Serious: Yes (Life-Threatening, Hospitalization, Other)
  Sender: FDA-Public Use
  Company Number: CA-PFIZER INC-2018505986

PATIENT
  Age: 57 Year
  Sex: Female
  Weight: 60 kg

DRUGS (3)
  1. CELEBREX [Suspect]
     Active Substance: CELECOXIB
     Dosage: 2000 MG, UNK
     Route: 048
  2. ACETAMINOPHEN;CODEINE PHOSPHATE [Concomitant]
     Dosage: 9240 MG, UNK
     Route: 048
  3. RIVOTRIL [Concomitant]
     Active Substance: CLONAZEPAM
     Dosage: 25 MG, UNK
     Route: 048

REACTIONS (4)
  - Acute kidney injury [Recovering/Resolving]
  - Metabolic acidosis [Recovering/Resolving]
  - Overdose [Recovering/Resolving]
  - Hepatocellular injury [Recovering/Resolving]
